FAERS Safety Report 21992214 (Version 1)
Quarter: 2023Q1

REPORT INFORMATION
  Report Type: Report from Study
  Country: CA (occurrence: CA)
  Receive Date: 20230214
  Receipt Date: 20230214
  Transmission Date: 20230418
  Serious: Yes (Other)
  Sender: FDA-Public Use
  Company Number: CA-JNJFOC-20230219651

PATIENT
  Sex: Male
  Weight: 98.064 kg

DRUGS (1)
  1. REMICADE [Suspect]
     Active Substance: INFLIXIMAB
     Indication: Colitis ulcerative
     Route: 042

REACTIONS (3)
  - Deafness transitory [Recovered/Resolved]
  - Ear infection [Recovering/Resolving]
  - Respiratory syncytial virus infection [Unknown]
